FAERS Safety Report 14413715 (Version 1)
Quarter: 2018Q1

REPORT INFORMATION
  Report Type: Spontaneous
  Country: US (occurrence: US)
  Receive Date: 20180118
  Receipt Date: 20180118
  Transmission Date: 20180509
  Serious: Yes (Disabling)
  Sender: FDA-Public Use
  Company Number: None

PATIENT
  Age: 41 Year
  Sex: Female
  Weight: 70 kg

DRUGS (1)
  1. DESCOVY [Suspect]
     Active Substance: EMTRICITABINE\TENOFOVIR ALAFENAMIDE FUMARATE
     Indication: PROPHYLAXIS AGAINST HIV INFECTION
     Dosage: ?          QUANTITY:28 TABLET(S);?
     Route: 048
     Dates: start: 20171217, end: 20180113

REACTIONS (11)
  - Muscular weakness [None]
  - Back pain [None]
  - Headache [None]
  - Immune system disorder [None]
  - Influenza [None]
  - Bronchitis [None]
  - Nausea [None]
  - Mental impairment [None]
  - Insomnia [None]
  - Pneumonia [None]
  - Pain [None]

NARRATIVE: CASE EVENT DATE: 20171219
